FAERS Safety Report 6692905-6 (Version None)
Quarter: 2010Q2

REPORT INFORMATION
  Report Type: 
  Country: None (occurrence: None)
  Receive Date: 20100419
  Receipt Date: 20100409
  Transmission Date: 20101027
  Serious: Yes (Hospitalization, Other)
  Sender: FDA-Public Use
  Company Number: 2009SP016952

PATIENT
  Age: 26 Year
  Sex: Female
  Weight: 147.419 kg

DRUGS (6)
  1. NUVARING [Suspect]
     Indication: CONTRACEPTION
     Dosage: 1 DF;QM;VAG
     Route: 067
     Dates: start: 20060301, end: 20060921
  2. DEPO PROVERA /00115201/ [Concomitant]
  3. DIFLUCAN [Concomitant]
  4. BENEFIBER /01648102/ [Concomitant]
  5. CLOTRIMAZOLE /00212501/ [Concomitant]
  6. PREMARIN [Concomitant]

REACTIONS (11)
  - BRONCHITIS [None]
  - DEEP VEIN THROMBOSIS [None]
  - INTERNATIONAL NORMALISED RATIO INCREASED [None]
  - NASAL TURBINATE HYPERTROPHY [None]
  - NOSE DEFORMITY [None]
  - PROTHROMBIN TIME PROLONGED [None]
  - PULMONARY EMBOLISM [None]
  - RECTAL HAEMORRHAGE [None]
  - RHINITIS ALLERGIC [None]
  - SINUSITIS [None]
  - VAGINAL HAEMORRHAGE [None]
